FAERS Safety Report 7289236-2 (Version None)
Quarter: 2011Q1

REPORT INFORMATION
  Report Type: 
  Country: None (occurrence: None)
  Receive Date: 20110201
  Receipt Date: 20110125
  Transmission Date: 20110831
  Serious: Yes (Other)
  Sender: FDA-Public Use
  Company Number: FKO201100037

PATIENT
  Age: 50 Year
  Sex: Male

DRUGS (2)
  1. ETOPOSIDE [Concomitant]
  2. CISPLATIN [Suspect]
     Indication: TESTIS CANCER

REACTIONS (6)
  - ARTERIAL OCCLUSIVE DISEASE [None]
  - PAIN IN EXTREMITY [None]
  - PERIPHERAL ISCHAEMIA [None]
  - CYANOSIS [None]
  - INTERMITTENT CLAUDICATION [None]
  - GANGRENE [None]
